FAERS Safety Report 9797908 (Version 1)
Quarter: 2014Q1

REPORT INFORMATION
  Report Type: Spontaneous
  Country: US (occurrence: None)
  Receive Date: 20140102
  Receipt Date: 20140102
  Transmission Date: 20141002
  Serious: Yes (Hospitalization)
  Sender: FDA-Public Use
  Company Number: None

PATIENT
  Age: 63 Year
  Sex: Male
  Weight: 114.6 kg

DRUGS (1)
  1. CISPLATIN [Suspect]
     Indication: EPIGLOTTIC CARCINOMA
     Dosage: MG, OTHER, IV
     Route: 042
     Dates: start: 20131209, end: 20131209

REACTIONS (7)
  - Nausea [None]
  - Retching [None]
  - Vomiting [None]
  - Renal failure acute [None]
  - International normalised ratio increased [None]
  - Hypokalaemia [None]
  - Hypomagnesaemia [None]
